FAERS Safety Report 25156019 (Version 1)
Quarter: 2025Q2

REPORT INFORMATION
  Report Type: Spontaneous
  Country: FR (occurrence: FR)
  Receive Date: 20250403
  Receipt Date: 20250403
  Transmission Date: 20250716
  Serious: Yes (Other)
  Sender: BAXTER
  Company Number: FR-BAXTER-2025BAX013264

PATIENT

DRUGS (1)
  1. PROPOFOL [Suspect]
     Active Substance: PROPOFOL
     Indication: Elbow operation
     Route: 065
     Dates: start: 20250322

REACTIONS (2)
  - Bispectral index [Unknown]
  - Drug ineffective [Unknown]
